FAERS Safety Report 8278708-X (Version None)
Quarter: 2012Q2

REPORT INFORMATION
  Report Type: 
  Country: None (occurrence: None)
  Receive Date: 20120412
  Receipt Date: 20110610
  Transmission Date: 20120825
  Serious: No
  Sender: FDA-Public Use
  Company Number: US-ASTRAZENECA-2011SE33162

PATIENT
  Age: 39 Year
  Sex: Male

DRUGS (2)
  1. PRILOSEC OTC [Suspect]
     Route: 048
  2. NEXIUM [Suspect]
     Route: 048

REACTIONS (7)
  - THERAPEUTIC RESPONSE UNEXPECTED [None]
  - DRUG DOSE OMISSION [None]
  - DRUG INEFFECTIVE [None]
  - GASTROOESOPHAGEAL REFLUX DISEASE [None]
  - BLOOD PRESSURE INCREASED [None]
  - INJURY [None]
  - INSOMNIA [None]
